FAERS Safety Report 8432023 (Version 3)
Quarter: 2012Q4

REPORT INFORMATION
  Report Type: 
  Country: US (occurrence: US)
  Receive Date: 20120229
  Receipt Date: 20121114
  Transmission Date: 20130627
  Serious: No
  Sender: FDA-Public Use
  Company Number: US-PFIZER INC-2012050008

PATIENT
  Age: 63 Year
  Sex: Male
  Weight: 61.22 kg

DRUGS (5)
  1. TIKOSYN [Suspect]
     Indication: ATRIAL FIBRILLATION
     Dosage: 500 mg, 2x/day
     Route: 048
     Dates: start: 201111
  2. DIGOXIN [Concomitant]
     Indication: CONGESTIVE HEART FAILURE
     Dosage: 0.25 mg, daily
  3. DIOVAN (VALSARTAN) [Concomitant]
     Indication: BLOOD PRESSURE HIGH
     Dosage: 80 mg, daily
  4. FUROSEMIDE [Concomitant]
     Indication: BLOOD PRESSURE HIGH
     Dosage: 80 mg, daily
  5. CARVEDILOL [Concomitant]
     Indication: BLOOD PRESSURE HIGH
     Dosage: 6.25 mg, 2x/day

REACTIONS (2)
  - Bronchitis [Not Recovered/Not Resolved]
  - Drug interaction [Unknown]
